FAERS Safety Report 8626856 (Version 3)
Quarter: 2012Q4

REPORT INFORMATION
  Report Type: 
  Country: US (occurrence: US)
  Receive Date: 20120620
  Receipt Date: 20120919
  Transmission Date: 20130627
  Serious: Yes (Death, Hospitalization, Other)
  Sender: FDA-Public Use
  Company Number: US-MPIJNJ-2012-04338

PATIENT
  Age: 82 Year
  Sex: Female
  Weight: 92 kg

DRUGS (4)
  1. VELCADE [Suspect]
     Indication: ACUTE MYELOID LEUKAEMIA
     Dosage: 1.3 mg/m2, Cyclic
     Route: 058
     Dates: start: 20120502, end: 20120512
  2. VELCADE [Suspect]
     Dosage: 1.3 mg/m2, Cyclic
     Route: 058
     Dates: start: 20120530, end: 20120606
  3. DECITABINE [Suspect]
     Indication: ACUTE MYELOID LEUKAEMIA
     Dosage: 20 mg/m2, Cyclic
     Route: 042
     Dates: start: 20120502, end: 20120512
  4. DECITABINE [Suspect]
     Dosage: 20 mg/m2, Cyclic
     Route: 042
     Dates: start: 20120530, end: 20120608

REACTIONS (14)
  - Muscular weakness [Unknown]
  - Hypoxia [Unknown]
  - Sepsis [Fatal]
  - Dyspnoea [Unknown]
  - Lymphocyte count decreased [Unknown]
  - Neutrophil count decreased [Unknown]
  - Platelet count decreased [Unknown]
  - White blood cell count decreased [Unknown]
  - Fatigue [Unknown]
  - Anaemia [Unknown]
  - Decreased appetite [Unknown]
  - Febrile neutropenia [Unknown]
  - Renal failure chronic [Unknown]
  - Acidosis [Unknown]
